FAERS Safety Report 5680895-4 (Version None)
Quarter: 2008Q1

REPORT INFORMATION
  Report Type: 
  Country: None (occurrence: None)
  Receive Date: 20080326
  Receipt Date: 20080314
  Transmission Date: 20080703
  Serious: Yes (Hospitalization, Other)
  Sender: FDA-Public Use
  Company Number: US-PFIZER INC-2008024738

PATIENT
  Sex: Female
  Weight: 77 kg

DRUGS (10)
  1. GABAPENTIN [Suspect]
     Indication: BACK PAIN
     Dates: start: 20080119, end: 20080212
  2. COREG [Concomitant]
  3. ACETYLSALICYLIC ACID SRT [Concomitant]
  4. VYTORIN [Concomitant]
  5. COUMADIN [Concomitant]
  6. EPOGEN [Concomitant]
  7. ZEMPLAR [Concomitant]
  8. SYNTHROID [Concomitant]
  9. DRUG USED IN DIABETES [Concomitant]
  10. NORVASC [Concomitant]

REACTIONS (13)
  - ALANINE AMINOTRANSFERASE INCREASED [None]
  - ASCITES [None]
  - ASPARTATE AMINOTRANSFERASE INCREASED [None]
  - CONFUSIONAL STATE [None]
  - HAEMOGLOBIN DECREASED [None]
  - HALLUCINATION [None]
  - HYPOGLYCAEMIA [None]
  - HYPOTENSION [None]
  - LETHARGY [None]
  - MENTAL STATUS CHANGES [None]
  - MUSCLE SPASMS [None]
  - MUSCLE TWITCHING [None]
  - PLATELET COUNT DECREASED [None]
